FAERS Safety Report 11256722 (Version 1)
Quarter: 2015Q3

REPORT INFORMATION
  Report Type: Spontaneous
  Country: US (occurrence: US)
  Receive Date: 20150709
  Receipt Date: 20150709
  Transmission Date: 20151125
  Serious: No
  Sender: FDA-Public Use
  Company Number: US-009507513-1506USA015444

PATIENT
  Sex: Female
  Weight: 83.9 kg

DRUGS (1)
  1. NEXPLANON [Suspect]
     Active Substance: ETONOGESTREL
     Indication: CONTRACEPTION
     Dosage: UNK
     Route: 059
     Dates: start: 20140115

REACTIONS (5)
  - Erythema [Unknown]
  - Urticaria [Unknown]
  - Rash [Unknown]
  - Swelling [Unknown]
  - Mood swings [Unknown]

NARRATIVE: CASE EVENT DATE: 2015
